FAERS Safety Report 7450520-0 (Version None)
Quarter: 2011Q2

REPORT INFORMATION
  Report Type: 
  Country: None (occurrence: None)
  Receive Date: 20110502
  Receipt Date: 20110425
  Transmission Date: 20111010
  Serious: Yes (Hospitalization, Other)
  Sender: FDA-Public Use
  Company Number: PHHY2011BR35313

PATIENT
  Sex: Female

DRUGS (1)
  1. DIOVAN HCT [Suspect]
     Indication: HYPERTENSION
     Dosage: 160 MG VALS AND 25 MG HYDR (1 TABLET DAILY)
     Route: 048
     Dates: start: 20110201

REACTIONS (4)
  - DYSPNOEA [None]
  - FALL [None]
  - JOINT SPRAIN [None]
  - HYPERTENSION [None]
